FAERS Safety Report 6701116-7 (Version None)
Quarter: 2010Q2

REPORT INFORMATION
  Report Type: 
  Country: None (occurrence: None)
  Receive Date: 20100428
  Receipt Date: 20100428
  Transmission Date: 20101027
  Serious: Yes (Life-Threatening, Hospitalization)
  Sender: FDA-Public Use
  Company Number: None

PATIENT
  Age: 16 Year
  Sex: Male
  Weight: 52.1637 kg

DRUGS (3)
  1. SINGULAIR [Suspect]
     Indication: MULTIPLE ALLERGIES
     Dosage: 1 TABLET DAILY PO
     Route: 048
     Dates: start: 20100416, end: 20100423
  2. CLARINEX [Concomitant]
  3. OPTIVAR [Concomitant]

REACTIONS (2)
  - ABNORMAL BEHAVIOUR [None]
  - SUICIDE ATTEMPT [None]
